FAERS Safety Report 9223443 (Version 1)
Quarter: 2013Q2

REPORT INFORMATION
  Report Type: Spontaneous
  Country: US (occurrence: US)
  Receive Date: 20130410
  Receipt Date: 20130410
  Transmission Date: 20140414
  Serious: No
  Sender: FDA-Public Use
  Company Number: US-ASTRAZENECA-2013SE20500

PATIENT
  Age: 20 Year
  Sex: Female
  Weight: 46.3 kg

DRUGS (1)
  1. SYMBICORT [Suspect]
     Dosage: 160/4.5, UNKNOWN FREQUENCY
     Route: 055

REACTIONS (1)
  - Thermal burn [Unknown]
